FAERS Safety Report 6713776-5 (Version None)
Quarter: 2010Q2

REPORT INFORMATION
  Report Type: 
  Country: None (occurrence: None)
  Receive Date: 20100504
  Receipt Date: 20100421
  Transmission Date: 20101027
  Serious: Yes (Hospitalization)
  Sender: FDA-Public Use
  Company Number: 1000012604

PATIENT
  Age: 78 Year
  Sex: Male

DRUGS (8)
  1. CITALOPRAM HYDROBROMIDE [Suspect]
     Indication: DEPRESSION
     Dosage: 1 DOSAGE FORMS (1 DOSAGE FORMS, 1 IN 1 D), ORAL
     Route: 048
     Dates: start: 20090101, end: 20100122
  2. CARVEDILOLO [Concomitant]
  3. ONCO-CARBIDE [Concomitant]
  4. APROVEL           (150 MILLIGRAM) [Concomitant]
  5. LANSOPRAZOLO                  (15 MILLIGRAM,  CAPSULES) [Concomitant]
  6. ASPIRIN [Concomitant]
  7. OMNIC [Concomitant]
  8. VITAMINES IDEOS [Concomitant]

REACTIONS (2)
  - HEAD INJURY [None]
  - HYPONATRAEMIA [None]
